FAERS Safety Report 18585204 (Version 1)
Quarter: 2020Q4

REPORT INFORMATION
  Report Type: Spontaneous
  Country: US (occurrence: US)
  Receive Date: 20201204
  Receipt Date: 20201204
  Transmission Date: 20210114
  Serious: Yes (Hospitalization)
  Sender: FDA-Public Use
  Company Number: None

PATIENT
  Sex: Female

DRUGS (18)
  1. VIRTUSSIN [Concomitant]
  2. DEXAMETHASON [Concomitant]
     Active Substance: DEXAMETHASONE
  3. ENOXAPARIN [Concomitant]
     Active Substance: ENOXAPARIN
  4. AC [Concomitant]
     Active Substance: DOXORUBICIN
  5. XALKORI [Suspect]
     Active Substance: CRIZOTINIB
     Indication: LUNG CARCINOMA CELL TYPE UNSPECIFIED STAGE 0
     Route: 048
     Dates: start: 20140624
  6. FLUCONAZOLE. [Concomitant]
     Active Substance: FLUCONAZOLE
  7. LEVOTHROXINE [Concomitant]
     Active Substance: LEVOTHYROXINE
  8. PANTOPRAZOLE [Concomitant]
     Active Substance: PANTOPRAZOLE
  9. SUMATRIPTAN. [Concomitant]
     Active Substance: SUMATRIPTAN
  10. TRAZODONE [Concomitant]
     Active Substance: TRAZODONE HYDROCHLORIDE
  11. CEFDINIR. [Concomitant]
     Active Substance: CEFDINIR
  12. FLUTICASONE. [Concomitant]
     Active Substance: FLUTICASONE
  13. PREGABALIN. [Concomitant]
     Active Substance: PREGABALIN
  14. AZITHROMYCIN ANHYDROUS. [Concomitant]
     Active Substance: AZITHROMYCIN ANHYDROUS
  15. MORPHINE SUL [Concomitant]
     Active Substance: MORPHINE SULFATE
  16. WARFARIN [Concomitant]
     Active Substance: WARFARIN
  17. AMITRIPTYLIN [Concomitant]
     Active Substance: AMITRIPTYLINE
  18. SERTRALINE [Concomitant]
     Active Substance: SERTRALINE HYDROCHLORIDE

REACTIONS (3)
  - Therapy interrupted [None]
  - Drug hypersensitivity [None]
  - Pneumonia [None]
